FAERS Safety Report 11570759 (Version 1)
Quarter: 2015Q3

REPORT INFORMATION
  Report Type: Spontaneous
  Country: US (occurrence: US)
  Receive Date: 20150916
  Receipt Date: 20150916
  Transmission Date: 20151125
  Serious: No
  Sender: FDA-Public Use
  Company Number: US-ELI_LILLY_AND_COMPANY-US200909003328

PATIENT
  Age: 70 Year
  Sex: Female

DRUGS (1)
  1. FORTEO [Suspect]
     Active Substance: TERIPARATIDE
     Indication: SPINAL FRACTURE
     Dosage: 20 UG, UNK
     Route: 058
     Dates: start: 200908

REACTIONS (2)
  - Muscle spasms [Recovered/Resolved]
  - Prothrombin time prolonged [Unknown]

NARRATIVE: CASE EVENT DATE: 2009
